APPROVED DRUG PRODUCT: DEXTROSE 3.3% AND SODIUM CHLORIDE 0.3% IN PLASTIC CONTAINER
Active Ingredient: DEXTROSE; SODIUM CHLORIDE
Strength: 3.3GM/100ML;300MG/100ML
Dosage Form/Route: INJECTABLE;INJECTION
Application: N019631 | Product #016
Applicant: B BRAUN MEDICAL INC
Approved: Jan 19, 1990 | RLD: No | RS: No | Type: RX